FAERS Safety Report 8463895-0 (Version None)
Quarter: 2012Q2

REPORT INFORMATION
  Report Type: 
  Country: None (occurrence: None)
  Receive Date: 20120625
  Receipt Date: 20120614
  Transmission Date: 20120825
  Serious: Yes (Other)
  Sender: FDA-Public Use
  Company Number: US-ASTRAZENECA-2012SE40312

PATIENT
  Sex: Male

DRUGS (1)
  1. NEXIUM [Suspect]
     Route: 048

REACTIONS (6)
  - ROTATOR CUFF SYNDROME [None]
  - GOUT [None]
  - CATARACT [None]
  - MYOCARDIAL INFARCTION [None]
  - ANGINA PECTORIS [None]
  - CLAVICLE FRACTURE [None]
